FAERS Safety Report 19722572 (Version 1)
Quarter: 2021Q3

REPORT INFORMATION
  Report Type: Report from Study
  Country: US (occurrence: US)
  Receive Date: 20210819
  Receipt Date: 20210819
  Transmission Date: 20211014
  Serious: Yes (Hospitalization, Other)
  Sender: FDA-Public Use
  Company Number: US-EMD SERONO-9257902

PATIENT
  Age: 35 Year
  Sex: Male

DRUGS (1)
  1. MAVENCLAD [Suspect]
     Active Substance: CLADRIBINE
     Indication: MULTIPLE SCLEROSIS
     Dosage: YEAR ONE THERAPY.
     Route: 048
     Dates: start: 20190925, end: 20191019

REACTIONS (7)
  - Dysphagia [Unknown]
  - Depression [Unknown]
  - Decubitus ulcer [Unknown]
  - Palpitations [Unknown]
  - Bladder catheterisation [Unknown]
  - Localised infection [Unknown]
  - Post procedural infection [Unknown]

NARRATIVE: CASE EVENT DATE: 202103
